FAERS Safety Report 11156320 (Version 1)
Quarter: 2015Q2

REPORT INFORMATION
  Report Type: Spontaneous
  Country: US (occurrence: None)
  Receive Date: 20150529
  Receipt Date: 20150529
  Transmission Date: 20150821
  Serious: Yes (Hospitalization)
  Sender: FDA-Public Use
  Company Number: None

PATIENT
  Age: 50 Year
  Sex: Female

DRUGS (1)
  1. JAKAFI [Suspect]
     Active Substance: RUXOLITINIB
     Indication: MYELOFIBROSIS
     Route: 048
     Dates: start: 201504, end: 201505

REACTIONS (8)
  - Crying [None]
  - Asthenia [None]
  - Pain [None]
  - Feeding disorder [None]
  - Movement disorder [None]
  - Platelet count decreased [None]
  - Malaise [None]
  - Loss of consciousness [None]

NARRATIVE: CASE EVENT DATE: 20150515
